FAERS Safety Report 5676222-9 (Version None)
Quarter: 2008Q1

REPORT INFORMATION
  Report Type: 
  Country: None (occurrence: None)
  Receive Date: 20080321
  Receipt Date: 20080311
  Transmission Date: 20080703
  Serious: Yes (Other)
  Sender: FDA-Public Use
  Company Number: SE-ELI_LILLY_AND_COMPANY-SE200803002947

PATIENT
  Sex: Female

DRUGS (6)
  1. STRATTERA [Suspect]
     Dosage: 50 MG, DAILY (1/D)
     Route: 048
  2. OMEPRAZOLE [Concomitant]
     Indication: GASTRITIS
     Dosage: 20 MG, DAILY (1/D)
     Route: 048
  3. EFFEXOR [Concomitant]
     Indication: DEPRESSION
     Dosage: 150 MG, DAILY (1/D)
     Route: 065
  4. FOLACIN [Concomitant]
     Dosage: 1 UNK, DAILY (1/D)
     Route: 048
  5. BEHEPAN [Concomitant]
     Dosage: 1 UNK, DAILY (1/D)
     Route: 048
  6. OXASCAND [Concomitant]
     Indication: NEUROSIS
     Dosage: 15 MG, AS NEEDED
     Route: 048

REACTIONS (2)
  - DRUG EXPOSURE DURING PREGNANCY [None]
  - PRE-ECLAMPSIA [None]
